FAERS Safety Report 9169276 (Version 1)
Quarter: 2013Q1

REPORT INFORMATION
  Report Type: Spontaneous
  Country: FR (occurrence: FR)
  Receive Date: 20130318
  Receipt Date: 20130318
  Transmission Date: 20140127
  Serious: Yes (Hospitalization)
  Sender: FDA-Public Use
  Company Number: FR-ROCHE-726616

PATIENT
  Age: 72 Year
  Sex: Male

DRUGS (7)
  1. ROCEPHINE [Suspect]
     Indication: LUNG DISORDER
     Dosage: FORM:POWDER FOR  SOLUTION FOR INJECTION
     Route: 042
     Dates: start: 20100607, end: 20100619
  2. REVLIMID [Suspect]
     Indication: PLASMA CELL MYELOMA
     Dosage: FREQUENCY: 3 WEEKS ON 4
     Route: 048
     Dates: start: 200907, end: 20100619
  3. CORDARONE [Suspect]
     Indication: ATRIAL FIBRILLATION
     Route: 048
     Dates: start: 20100611, end: 20100619
  4. TRIFLUCAN [Suspect]
     Indication: PRODUCT USED FOR UNKNOWN INDICATION
     Route: 048
     Dates: start: 20100611, end: 20100618
  5. TAVANIC [Suspect]
     Indication: PRODUCT USED FOR UNKNOWN INDICATION
     Route: 042
     Dates: start: 20100607, end: 20100617
  6. ASPEGIC [Concomitant]
     Dosage: START DATE: LONG TERM
     Route: 048
  7. LOVENOX [Concomitant]
     Indication: ATRIAL FIBRILLATION
     Route: 065

REACTIONS (1)
  - Pancytopenia [Recovered/Resolved]
